FAERS Safety Report 7246187-7 (Version None)
Quarter: 2011Q1

REPORT INFORMATION
  Report Type: 
  Country: None (occurrence: None)
  Receive Date: 20110126
  Receipt Date: 20110118
  Transmission Date: 20110831
  Serious: Yes (Other)
  Sender: FDA-Public Use
  Company Number: B0567729A

PATIENT
  Sex: Male
  Weight: 53 kg

DRUGS (19)
  1. MODACIN [Concomitant]
     Dosage: 3G PER DAY
     Route: 042
     Dates: start: 20090223, end: 20090224
  2. ROCEPHIN [Concomitant]
     Dosage: 2G PER DAY
     Route: 042
     Dates: start: 20090307, end: 20090320
  3. ALPROSTADIL ALFADEX [Suspect]
     Indication: VENOOCCLUSIVE DISEASE
     Dosage: 100MCG PER DAY
     Dates: start: 20090225, end: 20090305
  4. TACROLIMUS [Concomitant]
     Indication: IMMUNOSUPPRESSION
     Dosage: .0327MGM2 PER DAY
     Route: 065
     Dates: start: 20090302, end: 20090325
  5. ZOVIRAX [Concomitant]
     Dosage: 750MG PER DAY
     Route: 042
     Dates: start: 20090224, end: 20090324
  6. FUNGUARD [Concomitant]
     Dosage: 200MG PER DAY
     Route: 042
     Dates: start: 20090225, end: 20090307
  7. BAKTAR [Concomitant]
     Dosage: 4IUAX PER DAY
     Route: 048
     Dates: start: 20090423
  8. GLYCYRON [Concomitant]
     Dosage: 3IUAX PER DAY
     Route: 048
     Dates: start: 20090427
  9. ALKERAN [Suspect]
     Indication: BONE MARROW CONDITIONING REGIMEN
     Dosage: 220MGM2 PER DAY
     Route: 042
     Dates: start: 20090301, end: 20090301
  10. FLUDARA [Concomitant]
     Indication: ALLOGENIC BONE MARROW TRANSPLANTATION THERAPY
     Dosage: 46MG PER DAY
     Dates: start: 20090225, end: 20090301
  11. PRODIF [Concomitant]
     Dosage: 200MG PER DAY
     Route: 042
     Dates: start: 20090308, end: 20090320
  12. PROGRAF [Concomitant]
     Indication: PROPHYLAXIS AGAINST GRAFT VERSUS HOST DISEASE
     Dosage: 1.5MG PER DAY
     Route: 065
     Dates: start: 20090302, end: 20090325
  13. URSO 250 [Concomitant]
     Dosage: 3IUAX PER DAY
     Route: 048
     Dates: start: 20090329
  14. ACICLOVIR [Concomitant]
     Dosage: 1.5IUAX PER DAY
     Route: 048
     Dates: start: 20090329
  15. MEROPENEM [Concomitant]
     Dosage: 2G PER DAY
     Route: 042
     Dates: start: 20090223, end: 20090224
  16. MYCOSYST [Concomitant]
     Dosage: 2IUAX PER DAY
     Route: 048
     Dates: start: 20090329
  17. FRAGMIN [Concomitant]
     Indication: VENOOCCLUSIVE DISEASE
     Dosage: 6300IUAX PER DAY
     Route: 042
     Dates: start: 20090224, end: 20090325
  18. FIRSTCIN [Concomitant]
     Dosage: 2G PER DAY
     Route: 042
     Dates: start: 20090224, end: 20090307
  19. TAKEPRON [Concomitant]
     Dosage: 30MG PER DAY
     Route: 042
     Dates: start: 20090226, end: 20090317

REACTIONS (3)
  - TENDERNESS [None]
  - MUSCLE HAEMORRHAGE [None]
  - OEDEMA PERIPHERAL [None]
